FAERS Safety Report 5620127-6 (Version None)
Quarter: 2008Q1

REPORT INFORMATION
  Report Type: 
  Country: None (occurrence: None)
  Receive Date: 20080208
  Receipt Date: 20080131
  Transmission Date: 20080703
  Serious: Yes (Hospitalization)
  Sender: FDA-Public Use
  Company Number: JP-ROCHE-541338

PATIENT
  Age: 9 Year
  Sex: Male
  Weight: 34 kg

DRUGS (4)
  1. TAMIFLU [Suspect]
     Dosage: FORM DRY SYRUP
     Route: 048
     Dates: start: 20080109, end: 20080110
  2. DASEN [Concomitant]
     Route: 048
     Dates: start: 20080108, end: 20080110
  3. MUCODYNE [Concomitant]
     Route: 048
     Dates: start: 20080108, end: 20080110
  4. ACETAMINOPHEN [Concomitant]
     Dosage: TAKEN AS NEEDED
     Route: 048
     Dates: start: 20080108

REACTIONS (1)
  - CONFUSIONAL STATE [None]
